FAERS Safety Report 8913072 (Version 1)
Quarter: 2012Q4

REPORT INFORMATION
  Report Type: Spontaneous
  Country: GB (occurrence: None)
  Receive Date: 20121113
  Receipt Date: 20121113
  Transmission Date: 20130627
  Serious: No
  Sender: FDA-Public Use
  Company Number: 2012GR_BP006746

PATIENT
  Age: 62 Year
  Sex: Male

DRUGS (13)
  1. FINASTERIDE (FINASTERIDE) [Suspect]
     Indication: BLADDER DISORDER
     Dosage: 5 mg (5 mg, once daily)
     Dates: start: 20121003, end: 20121014
  2. TAMSULOSIN [Suspect]
     Indication: BLADDER DISORDER
     Dosage: 400 mcg (400 mcg (400 mcg. Once daily)
     Dates: start: 20121003, end: 20121003
  3. EZETIMIBE (EZETIMIBE) [Concomitant]
  4. LACTULOSE (LACTULOSE) [Concomitant]
  5. METFORMIN HYDROCHLORIDE (METFORMIN HYDROCHLORIDE) [Concomitant]
  6. MONTELUKAST SODIUM (MONTELUKAST SODIUM) [Concomitant]
  7. OMEPRAZOLE (OMEPRAZOLE) [Concomitant]
  8. OMEPRAZOLE (OMEPRAZOLE) [Concomitant]
  9. SITAGLIPTIN (SITAGLIPTIN) [Concomitant]
  10. SENNA (SENNA ALEXANDRINA) [Concomitant]
  11. SYMBICORT (BUDESONIDE, FORMOTEROL FUMARATE DEHYDRATE) [Concomitant]
  12. TERBUTALINE (TERBUTALINE) [Concomitant]
  13. MORPHINE SULPHATE (MORPHINE SULPHATE) [Concomitant]

REACTIONS (9)
  - Palpitations [None]
  - Testicular pain [None]
  - Condition aggravated [None]
  - Headache [None]
  - Chest pain [None]
  - Abdominal pain [None]
  - Diarrhoea [None]
  - Dizziness [None]
  - Malaise [None]
